FAERS Safety Report 5213451-2 (Version None)
Quarter: 2007Q1

REPORT INFORMATION
  Report Type: 
  Country: None (occurrence: None)
  Receive Date: 20070119
  Receipt Date: 20060111
  Transmission Date: 20070707
  Serious: No
  Sender: FDA-Public Use
  Company Number: US-GLAXOSMITHKLINE-A0588786A

PATIENT
  Sex: Male

DRUGS (4)
  1. THIOGUANINE [Suspect]
     Indication: PSORIASIS
     Route: 048
     Dates: start: 20051110
  2. FLONASE [Concomitant]
  3. GUAIFENESIN [Concomitant]
  4. THROAT GARGLE [Concomitant]

REACTIONS (2)
  - DECREASED APPETITE [None]
  - FATIGUE [None]
